FAERS Safety Report 10612693 (Version 2)
Quarter: 2015Q1

REPORT INFORMATION
  Report Type: Report from Study
  Country: PL (occurrence: PL)
  Receive Date: 20141127
  Receipt Date: 20150102
  Transmission Date: 20150720
  Serious: Yes (Life-Threatening, Hospitalization)
  Sender: FDA-Public Use
  Company Number: PL-ROCHE-1498303

PATIENT
  Age: 71 Year
  Sex: Male

DRUGS (8)
  1. BIBLOC [Concomitant]
     Route: 065
     Dates: end: 20140626
  2. NORVASC [Concomitant]
     Active Substance: AMLODIPINE BESYLATE
     Route: 065
     Dates: end: 20140626
  3. RANIBIZUMAB [Suspect]
     Active Substance: RANIBIZUMAB
     Dosage: 0.05ML
     Route: 050
     Dates: start: 20140425
  4. POLOCARD [Concomitant]
     Active Substance: ASPIRIN
     Route: 065
     Dates: end: 20140626
  5. DIURESIN [Concomitant]
     Route: 065
     Dates: end: 20140626
  6. CARDURA [Concomitant]
     Active Substance: DOXAZOSIN MESYLATE
     Route: 065
     Dates: end: 20140626
  7. RANIBIZUMAB [Suspect]
     Active Substance: RANIBIZUMAB
     Dosage: 0.05ML
     Route: 050
     Dates: start: 20140620, end: 20140620
  8. RANIBIZUMAB [Suspect]
     Active Substance: RANIBIZUMAB
     Indication: RETINAL VEIN THROMBOSIS
     Dosage: 0.05ML
     Route: 050
     Dates: start: 20140228

REACTIONS (7)
  - Circulatory collapse [Unknown]
  - Myocardial infarction [Recovering/Resolving]
  - Loss of consciousness [Unknown]
  - Coronary artery stenosis [Unknown]
  - Cardiogenic shock [Unknown]
  - Arrhythmia [Recovering/Resolving]
  - Ventricular fibrillation [Unknown]

NARRATIVE: CASE EVENT DATE: 20140626
